FAERS Safety Report 24142201 (Version 1)
Quarter: 2024Q3

REPORT INFORMATION
  Report Type: Spontaneous
  Country: US (occurrence: None)
  Receive Date: 20240726
  Receipt Date: 20240726
  Transmission Date: 20241017
  Serious: Yes (Hospitalization, Other)
  Sender: ASTRAZENECA
  Company Number: 2024A166851

PATIENT
  Age: 56 Year
  Sex: Male

DRUGS (6)
  1. ROSUVASTATIN [Suspect]
     Active Substance: ROSUVASTATIN\ROSUVASTATIN CALCIUM
     Route: 048
  2. PRILOSEC OTC [Suspect]
     Active Substance: OMEPRAZOLE MAGNESIUM
     Route: 048
  3. VENTOLIN HFA [Concomitant]
     Active Substance: ALBUTEROL SULFATE
  4. VITAMIN D [Concomitant]
     Active Substance: VITAMIN D NOS
  5. PREDNISONE [Concomitant]
     Active Substance: PREDNISONE
  6. TRELEGY ELLIPTA [Concomitant]
     Active Substance: FLUTICASONE FUROATE\UMECLIDINIUM BROMIDE\VILANTEROL TRIFENATATE

REACTIONS (7)
  - Sepsis [Unknown]
  - Bursitis [Unknown]
  - Respiratory failure [Unknown]
  - Cellulitis [Unknown]
  - Dyspnoea [Unknown]
  - Myasthenia gravis [Unknown]
  - Fatigue [Unknown]
